FAERS Safety Report 15494853 (Version 3)
Quarter: 2018Q4

REPORT INFORMATION
  Report Type: Report from Study
  Country: US (occurrence: US)
  Receive Date: 20181012
  Receipt Date: 20181106
  Transmission Date: 20190205
  Serious: Yes (Congenital Anomaly, Other)
  Sender: FDA-Public Use
  Company Number: US-GILEAD-2018-0367410

PATIENT
  Sex: Female

DRUGS (3)
  1. DOLUTEGRAVIR [Suspect]
     Active Substance: DOLUTEGRAVIR
     Indication: HIV INFECTION
     Dosage: 50 MG, QD
     Route: 064
     Dates: start: 20180619, end: 20180720
  2. EMTRICITABINE/TENOFOVIR ALAFENAMIDE [Suspect]
     Active Substance: EMTRICITABINE\TENOFOVIR
     Indication: HIV INFECTION
     Dosage: 1 DF, QD
     Route: 064
     Dates: start: 20180619
  3. ATAZANAVIR;COBICISTAT [Suspect]
     Active Substance: ATAZANAVIR SULFATE\COBICISTAT
     Indication: HIV INFECTION
     Dosage: 1 DF, QD
     Route: 064
     Dates: start: 20180802

REACTIONS (2)
  - Trisomy 15 [Not Recovered/Not Resolved]
  - Foetal exposure during pregnancy [Recovered/Resolved]

NARRATIVE: CASE EVENT DATE: 20180619
